FAERS Safety Report 11135161 (Version 4)
Quarter: 2015Q2

REPORT INFORMATION
  Report Type: Spontaneous
  Country: US (occurrence: US)
  Receive Date: 20150525
  Receipt Date: 20150609
  Transmission Date: 20150821
  Serious: Yes (Other)
  Sender: FDA-Public Use
  Company Number: US-ASTRAZENECA-2014SE17866

PATIENT
  Age: 20573 Day
  Sex: Female

DRUGS (61)
  1. CRESTOR [Concomitant]
     Active Substance: ROSUVASTATIN CALCIUM
     Route: 048
     Dates: start: 20060317
  2. DESYREL [Concomitant]
     Active Substance: TRAZODONE HYDROCHLORIDE
     Route: 048
     Dates: start: 20080613
  3. GLUCOPHAGE [Concomitant]
     Active Substance: METFORMIN HYDROCHLORIDE
     Dates: start: 20000513
  4. TRAZODONE [Concomitant]
     Active Substance: TRAZODONE HYDROCHLORIDE
     Dates: start: 20010319
  5. CLINDAMYCIN [Concomitant]
     Active Substance: CLINDAMYCIN\CLINDAMYCIN PHOSPHATE
     Dates: start: 20070521
  6. VICTOZA [Suspect]
     Active Substance: LIRAGLUTIDE
     Indication: TYPE 2 DIABETES MELLITUS
     Dosage: 18MG/3 ML
     Route: 065
     Dates: start: 20111003
  7. VICODIN [Concomitant]
     Active Substance: ACETAMINOPHEN\HYDROCODONE BITARTRATE
     Dosage: 5/500, TWO TABLETS EVERY SIX HOURS
     Route: 048
     Dates: start: 20080612
  8. PLAVIX [Concomitant]
     Active Substance: CLOPIDOGREL BISULFATE
     Route: 048
     Dates: start: 20050711
  9. PROZAC [Concomitant]
     Active Substance: FLUOXETINE HYDROCHLORIDE
     Route: 048
     Dates: start: 20010926
  10. VITAMIN D [Concomitant]
     Active Substance: CHOLECALCIFEROL
     Dates: start: 20080805
  11. VASOTEC [Concomitant]
     Active Substance: ENALAPRIL MALEATE
     Dates: start: 20010223
  12. MACROBID [Concomitant]
     Active Substance: NITROFURANTOIN\NITROFURANTOIN MONOHYDRATE
     Dates: start: 20011017
  13. RIMANTADINE [Concomitant]
     Active Substance: RIMANTADINE HYDROCHLORIDE
     Dates: start: 20041220
  14. DRONABINOL. [Concomitant]
     Active Substance: DRONABINOL
     Dates: start: 20120213
  15. PREDNISONE. [Concomitant]
     Active Substance: PREDNISONE
     Dates: start: 20140318
  16. WELLBUTRIN XL [Concomitant]
     Active Substance: BUPROPION HYDROCHLORIDE
     Route: 048
     Dates: start: 20060429
  17. PREVACID [Concomitant]
     Active Substance: LANSOPRAZOLE
     Dates: start: 20000513
  18. COREG [Concomitant]
     Active Substance: CARVEDILOL
     Dates: start: 20060521
  19. HYOSCYAMINE [Concomitant]
     Active Substance: HYOSCYAMINE
     Dosage: 0.125 M
     Dates: start: 20120210
  20. NITROSTAT [Concomitant]
     Active Substance: NITROGLYCERIN
     Dates: start: 20140428
  21. BYETTA [Suspect]
     Active Substance: EXENATIDE
     Indication: TYPE 2 DIABETES MELLITUS
     Dosage: 10 MCG/ 0.04 ML
     Route: 065
     Dates: start: 20080204
  22. CANDESARTAN [Concomitant]
     Active Substance: CANDESARTAN
     Route: 048
     Dates: start: 20080613
  23. ENOXAPARIN [Concomitant]
     Active Substance: ENOXAPARIN
     Route: 058
     Dates: start: 20080612
  24. LANTUS [Concomitant]
     Active Substance: INSULIN GLARGINE
     Dosage: 100 U/ ML
     Route: 058
     Dates: start: 20041020
  25. MORPHINE [Concomitant]
     Active Substance: MORPHINE
     Dosage: 2-4 MG, EVERY FOUR HOURS
     Dates: start: 20080612
  26. ATACAND [Concomitant]
     Active Substance: CANDESARTAN CILEXETIL
     Route: 048
     Dates: start: 20050711
  27. NEXIUM [Concomitant]
     Active Substance: ESOMEPRAZOLE MAGNESIUM
     Dates: start: 20060317
  28. GEMFIBROZIL. [Concomitant]
     Active Substance: GEMFIBROZIL
     Dates: start: 20010206
  29. SKELAXIN [Concomitant]
     Active Substance: METAXALONE
     Dates: start: 20061211
  30. ZOFRAN [Concomitant]
     Active Substance: ONDANSETRON HYDROCHLORIDE
     Dates: start: 20080612
  31. ACTOS [Concomitant]
     Active Substance: PIOGLITAZONE HYDROCHLORIDE
     Route: 048
     Dates: start: 20020727
  32. IRON [Concomitant]
     Active Substance: IRON
     Route: 048
     Dates: start: 20050711
  33. HUMULIN NOS [Concomitant]
     Active Substance: INSULIN HUMAN
     Dosage: 70/30
     Dates: start: 20010413
  34. BYETTA [Suspect]
     Active Substance: EXENATIDE
     Indication: TYPE 2 DIABETES MELLITUS
     Dosage: 10 MCG/ 0.04 ML
     Route: 065
     Dates: start: 20090106
  35. VICTOZA [Suspect]
     Active Substance: LIRAGLUTIDE
     Indication: TYPE 2 DIABETES MELLITUS
     Dosage: UNK
     Route: 065
     Dates: start: 20110122, end: 201111
  36. ASPIRIN. [Concomitant]
     Active Substance: ASPIRIN
     Route: 048
     Dates: start: 20080612
  37. SYNTHROID [Concomitant]
     Active Substance: LEVOTHYROXINE SODIUM
     Route: 048
     Dates: start: 20010319
  38. ROCEPHIN [Concomitant]
     Active Substance: CEFTRIAXONE SODIUM
     Dosage: 1 GM/ D5W
     Dates: start: 20080613
  39. TYLENOL [Concomitant]
     Active Substance: ACETAMINOPHEN
     Dates: start: 20080614
  40. CIPRO [Concomitant]
     Active Substance: CIPROFLOXACIN HYDROCHLORIDE
     Dates: start: 20011217
  41. BYETTA [Suspect]
     Active Substance: EXENATIDE
     Indication: TYPE 2 DIABETES MELLITUS
     Route: 065
     Dates: start: 20070510
  42. BYETTA [Suspect]
     Active Substance: EXENATIDE
     Indication: TYPE 2 DIABETES MELLITUS
     Dosage: 10 MCG/ 0.04 ML
     Route: 065
     Dates: start: 20101004
  43. VICTOZA [Suspect]
     Active Substance: LIRAGLUTIDE
     Indication: TYPE 2 DIABETES MELLITUS
     Dosage: 18MG/3 ML
     Route: 065
     Dates: start: 20110122
  44. DEXTROSE. [Concomitant]
     Active Substance: DEXTROSE
     Route: 048
     Dates: start: 20080612
  45. PNEUMOVAX 23 [Concomitant]
     Active Substance: PNEUMOCOCCAL VACCINE, POLYVALENT 23
     Route: 058
     Dates: start: 20080613
  46. CENTRUM SILVER [Concomitant]
     Active Substance: VITAMINS
     Dosage: DAILY
     Dates: start: 20080805
  47. LOTRISONE [Concomitant]
     Active Substance: BETAMETHASONE DIPROPIONATE\CLOTRIMAZOLE
     Dates: start: 20001214
  48. LEVAQUIN [Concomitant]
     Active Substance: LEVOFLOXACIN
     Dates: start: 20021107
  49. LIOTHYRONINE [Concomitant]
     Active Substance: LIOTHYRONINE
     Dates: start: 20110712
  50. BYETTA [Suspect]
     Active Substance: EXENATIDE
     Indication: TYPE 2 DIABETES MELLITUS
     Dosage: 10 MCG/ 0.04 ML
     Route: 065
     Dates: start: 20070510
  51. PRILOSEC [Concomitant]
     Active Substance: OMEPRAZOLE MAGNESIUM
     Dates: start: 20050711
  52. VITAMIN C [Concomitant]
     Active Substance: ASCORBIC ACID
     Route: 048
     Dates: start: 20090711
  53. VITAMIN B12 [Concomitant]
     Active Substance: CYANOCOBALAMIN
     Dosage: DAILY
     Dates: start: 20080805
  54. FERROUS SULFATE [Concomitant]
     Active Substance: FERROUS SULFATE\FERROUS SULFATE, DRIED
     Dates: start: 20080805
  55. DEMADEX/ TORSEMIDE [Concomitant]
     Dates: start: 20000513
  56. VIOXX [Concomitant]
     Active Substance: ROFECOXIB
     Dates: start: 20020501
  57. HUMALOG [Concomitant]
     Active Substance: INSULIN LISPRO
     Dosage: 100U/ ML
     Dates: start: 20010223
  58. BIAXIN [Concomitant]
     Active Substance: CLARITHROMYCIN
     Dates: start: 20030902
  59. MOBIC [Concomitant]
     Active Substance: MELOXICAM
     Dates: start: 20041223
  60. AVELOX [Concomitant]
     Active Substance: MOXIFLOXACIN HYDROCHLORIDE
     Dates: start: 20071115
  61. FLUTICASONE [Concomitant]
     Active Substance: FLUTICASONE\FLUTICASONE PROPIONATE
     Dates: start: 20140123

REACTIONS (3)
  - Hypothyroidism [Unknown]
  - Adenocarcinoma pancreas [Unknown]
  - Pancreatitis chronic [Unknown]

NARRATIVE: CASE EVENT DATE: 20111207
